FAERS Safety Report 8766557 (Version 1)
Quarter: 2012Q4

REPORT INFORMATION
  Report Type: 
  Country: US (occurrence: US)
  Receive Date: 20120904
  Receipt Date: 20120904
  Transmission Date: 20130627
  Serious: Yes (Other)
  Sender: FDA-Public Use
  Company Number: US-BAYER-2012-089662

PATIENT
  Age: 48 Year
  Sex: Female
  Weight: 68.03 kg

DRUGS (7)
  1. BETASERON [Suspect]
     Dosage: 0.25 mg, QOD
     Route: 058
  2. OXYBUTIN [Concomitant]
     Dosage: 5 mg/ml, UNK
  3. PROZAC [Concomitant]
     Dosage: 10 mg, UNK
  4. IBUPROFEN [Concomitant]
     Dosage: 200 mg, UNK
  5. PROVIGIL [Concomitant]
     Dosage: 100 mg, UNK
  6. MULTIVITAMIN [Concomitant]
  7. ACTHAR HP [Concomitant]

REACTIONS (5)
  - Multiple sclerosis relapse [Unknown]
  - Muscular weakness [Unknown]
  - Asthenia [Unknown]
  - Balance disorder [Unknown]
  - Fall [Unknown]
